FAERS Safety Report 14978911 (Version 1)
Quarter: 2018Q2

REPORT INFORMATION
  Report Type: Spontaneous
  Country: US (occurrence: US)
  Receive Date: 20180606
  Receipt Date: 20180606
  Transmission Date: 20180711
  Serious: Yes (Hospitalization, Other)
  Sender: FDA-Public Use
  Company Number: US-BAYER-2018-011928

PATIENT
  Sex: Female

DRUGS (15)
  1. BETASERON [Suspect]
     Active Substance: INTERFERON BETA-1B
     Indication: DIABETIC NEPHROPATHY
     Dosage: 0.3 MG, QOD
     Route: 058
     Dates: start: 20171228
  2. BACLOFEN. [Concomitant]
     Active Substance: BACLOFEN
     Dosage: 20 MG, UNK
  3. BETASERON [Suspect]
     Active Substance: INTERFERON BETA-1B
     Indication: DIABETIC NEPHROPATHY
     Dosage: 0.3 MG, QOD
     Route: 058
     Dates: start: 201712
  4. MULTIVITAMIN [Concomitant]
     Active Substance: VITAMINS
  5. BUTALBITAL [Concomitant]
     Active Substance: BUTALBITAL
     Dosage: 50 MG, UNK
  6. COZAAR [Concomitant]
     Active Substance: LOSARTAN POTASSIUM
     Dosage: 50 MG, UNK
  7. FLONASE [Concomitant]
     Active Substance: FLUTICASONE PROPIONATE
     Dosage: 27.5 ?G, UNK
  8. VITAMIN C [Concomitant]
     Active Substance: ASCORBIC ACID
     Dosage: 1000 MG, UNK
  9. TEGRETOL XR [Concomitant]
     Active Substance: CARBAMAZEPINE
  10. GABAPENTIN. [Concomitant]
     Active Substance: GABAPENTIN
     Dosage: 800 MG, UNK
  11. IBUPROFEN. [Concomitant]
     Active Substance: IBUPROFEN
     Dosage: 800 MG, UNK
  12. METFORMIN HCL [Concomitant]
     Active Substance: METFORMIN HYDROCHLORIDE
     Dosage: 1000 MG, UNK
  13. PROVIGIL [Concomitant]
     Active Substance: MODAFINIL
     Dosage: 200 MG, UNK
  14. DIAZEPAM. [Concomitant]
     Active Substance: DIAZEPAM
     Dosage: 20 MG, UNK
  15. FISH OIL [Concomitant]
     Active Substance: FISH OIL
     Dosage: 1200 MG, UNK

REACTIONS (3)
  - Product use in unapproved indication [None]
  - Optic neuritis [Recovered/Resolved]
  - Herpes zoster [None]
